FAERS Safety Report 4404336-X (Version None)
Quarter: 2004Q3

REPORT INFORMATION
  Report Type: 
  Country: None (occurrence: None)
  Receive Date: 20040719
  Receipt Date: 20040707
  Transmission Date: 20050211
  Serious: Yes (Hospitalization)
  Sender: FDA-Public Use
  Company Number: 04P-087-0266464-00

PATIENT
  Age: 45 Year
  Sex: Male

DRUGS (7)
  1. NORVIR SOFT GELATIN CPASULES (NORVIR) (RITONAVIR) [Suspect]
     Indication: RETROVIRAL INFECTION
     Dosage: 200 MG, 1 IN 1 D, PER ORAL
     Route: 048
     Dates: start: 20040209
  2. LAMIVUDINE [Suspect]
     Indication: HIV INFECTION
     Dosage: 150 MG, 2 IN 1 D, PER ORAL
     Route: 048
     Dates: start: 20040127
  3. STAVUDINE [Suspect]
     Indication: HIV INFECTION
     Dosage: 60 MG, 1 IN 1 D, PER ORAL
     Route: 048
     Dates: start: 20040127
  4. EFAVIRENZ [Suspect]
     Indication: HIV INFECTION
     Dosage: 600 MG, 1 IN 1 D, PER ORAL
     Route: 048
     Dates: start: 20040127, end: 20040208
  5. SAQUINAVIR [Suspect]
     Indication: HIV INFECTION
     Dosage: 1.6 MG, 1 IN 1 D, PER ORAL
     Route: 048
     Dates: start: 20040209
  6. FLUCONAZOLE [Concomitant]
  7. AZITHROMYCIN [Concomitant]

REACTIONS (3)
  - ATYPICAL MYCOBACTERIAL INFECTION [None]
  - MALAISE [None]
  - PYREXIA [None]
